FAERS Safety Report 10161274 (Version 1)
Quarter: 2014Q2

REPORT INFORMATION
  Report Type: Spontaneous
  Country: US (occurrence: US)
  Receive Date: 20140508
  Receipt Date: 20140508
  Transmission Date: 20141212
  Serious: Yes (Other)
  Sender: FDA-Public Use
  Company Number: US-PFIZER INC-2014123495

PATIENT
  Age: 74 Year
  Sex: Male

DRUGS (10)
  1. TIKOSYN [Suspect]
     Indication: ATRIAL FIBRILLATION
     Dosage: 375 UG, 2X/DAY (125 MCG PO CAP, 3 CAPSULES TWICE DAILY)
     Route: 048
     Dates: start: 201011
  2. AMLODIPINE [Concomitant]
     Dosage: UNK
  3. LOVASTATIN [Concomitant]
     Dosage: UNK
  4. DIPHENHYDRAMINE [Concomitant]
     Dosage: UNK
  5. LISINOPRIL [Concomitant]
     Dosage: UNK
  6. ALLOPURINOL [Concomitant]
  7. NAPROXEN [Concomitant]
     Dosage: UNK
  8. WARFARIN [Concomitant]
     Dosage: UNK
  9. RANITIDINE [Concomitant]
     Dosage: UNK
  10. ACEBUTOLOL [Concomitant]
     Dosage: UNK

REACTIONS (2)
  - Prostate cancer [Unknown]
  - Chronic obstructive pulmonary disease [Unknown]
